FAERS Safety Report 7118745-1 (Version None)
Quarter: 2010Q4

REPORT INFORMATION
  Report Type: 
  Country: None (occurrence: None)
  Receive Date: 20101123
  Receipt Date: 20101115
  Transmission Date: 20110411
  Serious: Yes (Hospitalization)
  Sender: FDA-Public Use
  Company Number: CA-JNJFOC-20101105951

PATIENT
  Sex: Female
  Weight: 98.3 kg

DRUGS (6)
  1. REMICADE [Suspect]
     Indication: CROHN'S DISEASE
     Route: 042
  2. LYRICA [Concomitant]
  3. VERAPAMIL [Concomitant]
  4. FENOFIBRATE [Concomitant]
  5. QUININE [Concomitant]
  6. AVANDIA [Concomitant]

REACTIONS (1)
  - MASTECTOMY [None]
